FAERS Safety Report 24351521 (Version 1)
Quarter: 2024Q3

REPORT INFORMATION
  Report Type: Report from Study
  Country: US (occurrence: US)
  Receive Date: 20240923
  Receipt Date: 20240923
  Transmission Date: 20241017
  Serious: Yes (Hospitalization)
  Sender: ABBVIE
  Company Number: US-ABBVIE-5930118

PATIENT
  Age: 61 Year
  Sex: Female

DRUGS (1)
  1. HUMIRA [Suspect]
     Active Substance: ADALIMUMAB
     Indication: Rheumatoid arthritis
     Dosage: CITRATE FREE
     Route: 058
     Dates: start: 20220404

REACTIONS (8)
  - Urinary tract infection [Recovering/Resolving]
  - Gait inability [Recovering/Resolving]
  - Dizziness [Recovering/Resolving]
  - Fibromyalgia [Recovering/Resolving]
  - White blood cell count decreased [Unknown]
  - Hypertension [Unknown]
  - Neuropathy peripheral [Unknown]
  - Musculoskeletal disorder [Unknown]

NARRATIVE: CASE EVENT DATE: 20240501
